FAERS Safety Report 6848635-0 (Version None)
Quarter: 2010Q3

REPORT INFORMATION
  Report Type: 
  Country: None (occurrence: None)
  Receive Date: 20100716
  Receipt Date: 20100707
  Transmission Date: 20110219
  Serious: Yes (Other)
  Sender: FDA-Public Use
  Company Number: CA-JNJFOC-20100702944

PATIENT
  Sex: Female
  Weight: 20 kg

DRUGS (4)
  1. REMICADE [Suspect]
     Indication: RHEUMATOID ARTHRITIS
     Dosage: DOSE REPORTED AS ^100^
     Route: 042
  2. REMICADE [Suspect]
     Dosage: DOSE REPORTED AS ^100^
     Route: 042
  3. REMICADE [Suspect]
     Indication: CROHN'S DISEASE
     Dosage: DOSE REPORTED AS ^100^
     Route: 042
  4. REMICADE [Suspect]
     Dosage: DOSE REPORTED AS ^100^
     Route: 042

REACTIONS (6)
  - FATIGUE [None]
  - HEADACHE [None]
  - LETHARGY [None]
  - NAUSEA [None]
  - PYREXIA [None]
  - TYPE IV HYPERSENSITIVITY REACTION [None]
